FAERS Safety Report 4956824-5 (Version None)
Quarter: 2006Q1

REPORT INFORMATION
  Report Type: 
  Country: None (occurrence: None)
  Receive Date: 20060329
  Receipt Date: 20060320
  Transmission Date: 20060701
  Serious: Yes (Death)
  Sender: FDA-Public Use
  Company Number: US-BRISTOL-MYERS SQUIBB COMPANY-13320569

PATIENT
  Sex: Female

DRUGS (2)
  1. COUMADIN [Suspect]
  2. XELODA [Suspect]

REACTIONS (1)
  - ANEURYSM [None]
